FAERS Safety Report 5406488-1 (Version None)
Quarter: 2007Q3

REPORT INFORMATION
  Report Type: 
  Country: None (occurrence: None)
  Receive Date: 20070806
  Receipt Date: 20070731
  Transmission Date: 20080115
  Serious: Yes (Death)
  Sender: FDA-Public Use
  Company Number: CA-PFIZER INC-2007063753

PATIENT
  Age: 71 Year
  Sex: Male
  Weight: 85.2 kg

DRUGS (1)
  1. SU-011,248 [Suspect]
     Indication: MYELODYSPLASTIC SYNDROME
     Route: 048
     Dates: start: 20070502, end: 20070514

REACTIONS (1)
  - DEATH [None]
